FAERS Safety Report 13862613 (Version 2)
Quarter: 2017Q3

REPORT INFORMATION
  Report Type: Spontaneous
  Country: US (occurrence: US)
  Receive Date: 20170814
  Receipt Date: 20170831
  Transmission Date: 20171127
  Serious: Yes (Hospitalization)
  Sender: FDA-Public Use
  Company Number: US-B.I. PHARMACEUTICALS,INC./RIDGEFIELD-2017-BI-043939

PATIENT
  Age: 74 Year
  Sex: Male

DRUGS (2)
  1. GILOTRIF [Suspect]
     Active Substance: AFATINIB
     Indication: NON-SMALL CELL LUNG CANCER METASTATIC
     Route: 048
     Dates: start: 20170322, end: 201704
  2. GILOTRIF [Suspect]
     Active Substance: AFATINIB
     Indication: BLADDER CANCER
     Route: 048
     Dates: start: 20170526, end: 20170704

REACTIONS (8)
  - Pyrexia [Recovered/Resolved]
  - Oral herpes [Recovered/Resolved]
  - Eating disorder [Not Recovered/Not Resolved]
  - Dermatitis diaper [Recovered/Resolved]
  - Clostridium difficile infection [Recovered/Resolved]
  - Dry mouth [Recovered/Resolved]
  - Diabetes mellitus inadequate control [Recovered/Resolved]
  - Rash [Recovered/Resolved]

NARRATIVE: CASE EVENT DATE: 201704
